FAERS Safety Report 8824099 (Version 2)
Quarter: 2012Q4

REPORT INFORMATION
  Report Type: 
  Country: US (occurrence: US)
  Receive Date: 20121003
  Receipt Date: 20121114
  Transmission Date: 20130627
  Serious: Yes (Other)
  Sender: FDA-Public Use
  Company Number: US-PFIZER INC-2012240625

PATIENT
  Age: 52 Year
  Sex: Female

DRUGS (2)
  1. CELEBREX [Suspect]
     Dosage: UNK
  2. SKELAXIN [Suspect]
     Dosage: UNK

REACTIONS (11)
  - Hip fracture [Unknown]
  - Ear disorder [Unknown]
  - Tendon rupture [Unknown]
  - Intervertebral disc protrusion [Unknown]
  - Back injury [Unknown]
  - Dry mouth [Unknown]
  - Fatigue [Unknown]
  - Drooling [Unknown]
  - Hunger [Unknown]
  - Muscle spasms [Unknown]
  - Lip pain [Unknown]
